FAERS Safety Report 19505510 (Version 1)
Quarter: 2021Q3

REPORT INFORMATION
  Report Type: Spontaneous
  Country: DE (occurrence: DE)
  Receive Date: 20210708
  Receipt Date: 20210708
  Transmission Date: 20211014
  Serious: Yes (Hospitalization)
  Sender: FDA-Public Use
  Company Number: DE-TEVA-2021-DE-1929558

PATIENT
  Age: 81 Year
  Sex: Male
  Weight: 125 kg

DRUGS (13)
  1. NAPROXEN. [Suspect]
     Active Substance: NAPROXEN
     Dosage: 500 MILLIGRAM DAILY; 1?0?0?0,
     Route: 048
  2. TORASEMID [Suspect]
     Active Substance: TORSEMIDE
     Dosage: 20 MILLIGRAM DAILY; 1?0?0?0
     Route: 048
  3. TAMSULOSIN [Concomitant]
     Active Substance: TAMSULOSIN
     Dosage: .4 MILLIGRAM DAILY; 0?0?1?0
     Route: 048
  4. DIHYDROCODEINE [Concomitant]
     Active Substance: DIHYDROCODEINE
     Dosage: 10 MG, REQUIREMENT, DROPS
     Route: 048
  5. TORASEMID [Suspect]
     Active Substance: TORSEMIDE
     Dosage: 10 MILLIGRAM DAILY;  0?0?1?0
     Route: 048
  6. CANDESARTAN/HYDROCHLOROTHIAZID [Suspect]
     Active Substance: CANDESARTAN CILEXETIL\HYDROCHLOROTHIAZIDE
     Dosage: 1 DOSAGE FORMS DAILY; 16|12.5 MG, 1?0?0?0
     Route: 048
  7. CANDESARTAN. [Suspect]
     Active Substance: CANDESARTAN
     Dosage: 16 MILLIGRAM DAILY;  1?0?0?0
     Route: 048
  8. EDOXABAN [Concomitant]
     Active Substance: EDOXABAN TOSYLATE
     Dosage: 30 MILLIGRAM DAILY;  1?0?0?0
     Route: 048
  9. BENSERAZID/LEVODOPA [Concomitant]
     Active Substance: BENSERAZIDE\LEVODOPA
     Dosage: 1 DOSAGE FORMS DAILY; 25|100 MG, 0?0?1?0
     Route: 048
  10. TILIDINE/NALOXONE [Concomitant]
     Active Substance: NALOXONE HYDROCHLORIDE\TILIDINE HYDROCHLORIDE
     Dosage: 8 | 100 MG, REQUIREMENT,1DF
     Route: 048
  11. HYDROMORPHON [Concomitant]
     Active Substance: HYDROMORPHONE
     Dosage: 4 MG, REQUIREMENT
     Route: 048
  12. ISOSORBIDMONONITRAT [Concomitant]
     Active Substance: ISOSORBIDE MONONITRATE
     Dosage: 40 MILLIGRAM DAILY; 0?0?1?0
     Route: 048
  13. INSULIN HUMAN [Concomitant]
     Active Substance: INSULIN HUMAN
     Dosage: 90 DOSAGE FORMS DAILY; 1 IU, 30?30?30?0, PRE?FILLED SYRINGES
     Route: 058

REACTIONS (4)
  - Hypertension [Unknown]
  - Dyspnoea [Unknown]
  - Muscular weakness [Unknown]
  - General physical health deterioration [Unknown]
